FAERS Safety Report 5166636-8 (Version None)
Quarter: 2006Q4

REPORT INFORMATION
  Report Type: 
  Country: None (occurrence: None)
  Receive Date: 20061129
  Receipt Date: 20061120
  Transmission Date: 20070319
  Serious: Yes (Hospitalization)
  Sender: FDA-Public Use
  Company Number: GXKR2006DE06675

PATIENT
  Age: 86 Year
  Sex: Female

DRUGS (2)
  1. CITALOPRAM HEXAL (NGX)(CITALOPRAM) FILM-COATED TABLET [Suspect]
     Dosage: 20 MG, QD, ORAL
     Route: 048
  2. INSIDON (OPIPRAMOL HYDROCHLORIDE) UNKNOWN [Suspect]
     Dosage: 50 MG, QD, ORAL
     Route: 048

REACTIONS (2)
  - ATRIOVENTRICULAR BLOCK [None]
  - DRUG INTERACTION [None]
